FAERS Safety Report 13109714 (Version 1)
Quarter: 2017Q1

REPORT INFORMATION
  Report Type: Spontaneous
  Country: US (occurrence: US)
  Receive Date: 20170112
  Receipt Date: 20170112
  Transmission Date: 20170428
  Serious: No
  Sender: FDA-Public Use
  Company Number: US-PFIZER INC-2017010014

PATIENT
  Age: 40 Year
  Sex: Male
  Weight: 52.83 kg

DRUGS (1)
  1. SUTENT [Suspect]
     Active Substance: SUNITINIB MALATE
     Indication: MALIGNANT NEOPLASM OF THYMUS
     Dosage: 37.5 MG, CYCLIC, (DAY 1-21 Q28 DAYS)
     Route: 048
     Dates: start: 20160801, end: 20161110

REACTIONS (1)
  - Neoplasm progression [Unknown]
